FAERS Safety Report 9980444 (Version 2)
Quarter: 2015Q4

REPORT INFORMATION
  Report Type: Report from Study
  Country: US (occurrence: US)
  Receive Date: 20140307
  Receipt Date: 20151125
  Transmission Date: 20160305
  Serious: Yes (Other)
  Sender: FDA-Public Use
  Company Number: US-ROCHE-1343747

PATIENT
  Sex: Male

DRUGS (10)
  1. LUCENTIS [Suspect]
     Active Substance: RANIBIZUMAB
     Indication: RETINAL OEDEMA
  2. LUCENTIS [Suspect]
     Active Substance: RANIBIZUMAB
     Indication: CATARACT
  3. HUMULIN INSULIN [Concomitant]
     Active Substance: INSULIN HUMAN
     Dosage: 25 U -O-150 (70:30)
     Route: 065
  4. LUCENTIS [Suspect]
     Active Substance: RANIBIZUMAB
     Indication: DIABETIC RETINAL OEDEMA
  5. TIMOLOL. [Concomitant]
     Active Substance: TIMOLOL
     Dosage: BID OD
     Route: 047
  6. AVASTIN [Suspect]
     Active Substance: BEVACIZUMAB
     Indication: DIABETIC RETINAL OEDEMA
     Route: 050
     Dates: start: 20110621
  7. AVASTIN [Suspect]
     Active Substance: BEVACIZUMAB
     Indication: CATARACT
  8. AVASTIN [Suspect]
     Active Substance: BEVACIZUMAB
     Indication: RETINAL OEDEMA
  9. AVASTIN [Suspect]
     Active Substance: BEVACIZUMAB
     Indication: DIABETIC RETINOPATHY
  10. LUCENTIS [Suspect]
     Active Substance: RANIBIZUMAB
     Indication: DIABETIC RETINOPATHY
     Route: 050
     Dates: start: 20110818

REACTIONS (5)
  - Glaucoma [Unknown]
  - Meibomianitis [Unknown]
  - Eye infection [Unknown]
  - Cutis laxa [Unknown]
  - Visual acuity reduced [Unknown]
